FAERS Safety Report 8035818-X (Version None)
Quarter: 2012Q1

REPORT INFORMATION
  Report Type: 
  Country: None (occurrence: None)
  Receive Date: 20120111
  Receipt Date: 20120104
  Transmission Date: 20120608
  Serious: Yes (Other)
  Sender: FDA-Public Use
  Company Number: FR-BRISTOL-MYERS SQUIBB COMPANY-16244790

PATIENT
  Age: 54 Year
  Sex: Male
  Weight: 65 kg

DRUGS (3)
  1. NORVIR [Concomitant]
     Dates: start: 20070101
  2. TRUVADA [Concomitant]
     Dates: start: 20070101
  3. REYATAZ [Suspect]
     Indication: HIV INFECTION
     Dosage: 2007-APR2011
     Route: 048
     Dates: start: 20070101, end: 20110501

REACTIONS (2)
  - NEPHROLITHIASIS [None]
  - PYELONEPHRITIS [None]
